FAERS Safety Report 6218227-5 (Version None)
Quarter: 2009Q2

REPORT INFORMATION
  Report Type: 
  Country: None (occurrence: None)
  Receive Date: 20090604
  Receipt Date: 20090604
  Transmission Date: 20091009
  Serious: Yes (Other)
  Sender: FDA-Public Use
  Company Number: None

PATIENT
  Age: 22 Year
  Sex: Female
  Weight: 55.3388 kg

DRUGS (2)
  1. IMPLANON [Suspect]
     Indication: CONTRACEPTION
  2. BUPROPION HCL [Concomitant]

REACTIONS (1)
  - PURPURA [None]
